FAERS Safety Report 16274385 (Version 2)
Quarter: 2019Q2

REPORT INFORMATION
  Report Type: Spontaneous
  Country: US (occurrence: US)
  Receive Date: 20190506
  Receipt Date: 20190516
  Transmission Date: 20190711
  Serious: Yes (Death, Hospitalization)
  Sender: FDA-Public Use
  Company Number: US-HORIZON-RAV-0118-2019

PATIENT
  Age: 30 Year
  Sex: Male

DRUGS (12)
  1. VANCOMYCIN [Concomitant]
     Active Substance: VANCOMYCIN
  2. AZACTAM [Concomitant]
     Active Substance: AZTREONAM
  3. LASIX [Concomitant]
     Active Substance: FUROSEMIDE
  4. LACTULOSE. [Concomitant]
     Active Substance: LACTULOSE
  5. PROVENTIL [Concomitant]
     Active Substance: ALBUTEROL
  6. DIFLUCAN [Concomitant]
     Active Substance: FLUCONAZOLE
  7. PHENOBARBITAL. [Concomitant]
     Active Substance: PHENOBARBITAL
  8. RAVICTI [Suspect]
     Active Substance: GLYCEROL PHENYLBUTYRATE
     Indication: ARGININOSUCCINATE LYASE DEFICIENCY
     Dosage: 3 ML THREE TIMES DAILY
     Route: 048
     Dates: end: 20190412
  9. ARGININE [Concomitant]
     Active Substance: ARGININE
  10. NYSTATIN. [Concomitant]
     Active Substance: NYSTATIN
  11. METRONIDAZOLE. [Concomitant]
     Active Substance: METRONIDAZOLE
  12. FENTANYL. [Concomitant]
     Active Substance: FENTANYL

REACTIONS (2)
  - Acute respiratory failure [Fatal]
  - Pneumonia [Unknown]
